FAERS Safety Report 11743205 (Version 1)
Quarter: 2015Q4

REPORT INFORMATION
  Report Type: Spontaneous
  Country: FR (occurrence: FR)
  Receive Date: 20151116
  Receipt Date: 20151116
  Transmission Date: 20160304
  Serious: Yes (Hospitalization)
  Sender: FDA-Public Use
  Company Number: FR-BAXTER-2015BAX060320

PATIENT
  Age: 13 Year
  Sex: Male

DRUGS (19)
  1. LEVOFOLINATE DE CALCIUM ZENTIVA [Suspect]
     Active Substance: LEVOLEUCOVORIN CALCIUM
     Indication: PRODUCT USED FOR UNKNOWN INDICATION
     Dosage: FROM D2 TO D4
     Route: 042
  2. UROMITEXAN 5 G/50 ML, SOLUTION INJECTABLE POUR PERFUSION EN FLACON [Suspect]
     Active Substance: MESNA
     Dosage: SECOND COURSE, FROM D1 TO D4
     Route: 042
     Dates: start: 20151014, end: 20151017
  3. ONDANSETRON ACCORD [Suspect]
     Active Substance: ONDANSETRON
     Dosage: D1 TO D4
     Route: 041
     Dates: start: 20150916, end: 20150919
  4. HYDROXYZINE [Suspect]
     Active Substance: HYDROXYZINE\HYDROXYZINE HYDROCHLORIDE
     Dosage: FORM STRENGTH 100MG/2ML, FROM D1 TO D2
     Route: 042
     Dates: start: 20151014, end: 20151015
  5. HYDROXYZINE [Suspect]
     Active Substance: HYDROXYZINE\HYDROXYZINE HYDROCHLORIDE
     Indication: PRODUCT USED FOR UNKNOWN INDICATION
     Dosage: FROM D1 TO D4
     Route: 042
     Dates: start: 20150824
  6. IFOSFAMIDE EG [Suspect]
     Active Substance: IFOSFAMIDE
     Dosage: SECOND COURSE, FROM D1 TO D4
     Route: 042
     Dates: start: 20151014, end: 20151017
  7. ETOPOSIDE TEVA [Suspect]
     Active Substance: ETOPOSIDE
     Indication: PRODUCT USED FOR UNKNOWN INDICATION
     Dosage: FIRST COURSE, D1 TO D4
     Route: 041
     Dates: start: 20150916, end: 20150919
  8. IFOSFAMIDE EG [Suspect]
     Active Substance: IFOSFAMIDE
     Indication: PRODUCT USED FOR UNKNOWN INDICATION
     Dosage: FIRST COURSE, D1 TO D4
     Route: 041
     Dates: start: 20150916, end: 20150919
  9. ETOPOSIDE TEVA [Suspect]
     Active Substance: ETOPOSIDE
     Dosage: SECOND COURSE, FROM D1 TO D4
     Route: 042
     Dates: start: 20151014, end: 20151017
  10. METHOTREXATE (METHOTREXATE SODIUM) [Suspect]
     Active Substance: METHOTREXATE SODIUM
     Dosage: HIGH DOSE, 12MG/M2, SECOND COURSE
     Route: 041
     Dates: start: 20150831
  11. ONDANSETRON ACCORD [Suspect]
     Active Substance: ONDANSETRON
     Indication: PRODUCT USED FOR UNKNOWN INDICATION
     Dosage: FROM D1 TO D6
     Route: 042
     Dates: start: 20150824
  12. METHYLPREDNISOLONE. [Suspect]
     Active Substance: METHYLPREDNISOLONE
     Indication: PRODUCT USED FOR UNKNOWN INDICATION
     Dosage: FIRST COURSE, D1 TO D4
     Route: 041
     Dates: start: 20150916, end: 20150919
  13. METHOTREXATE (METHOTREXATE SODIUM) [Suspect]
     Active Substance: METHOTREXATE SODIUM
     Indication: PRODUCT USED FOR UNKNOWN INDICATION
     Dosage: HIGH DOSE, 12MG/M2, FIRST COURSE
     Route: 041
     Dates: start: 20150824
  14. METHOTREXATE (METHOTREXATE SODIUM) [Suspect]
     Active Substance: METHOTREXATE SODIUM
     Dosage: HIGH DOSE, 12MG/M2, THIRD COURSE
     Route: 041
     Dates: start: 20150909, end: 20150909
  15. ONDANSETRON ACCORD [Suspect]
     Active Substance: ONDANSETRON
     Dosage: FROM D1 TO D5
     Route: 042
     Dates: start: 20151014, end: 20151018
  16. UROMITEXAN 5 G/50 ML, SOLUTION INJECTABLE POUR PERFUSION EN FLACON [Suspect]
     Active Substance: MESNA
     Indication: PRODUCT USED FOR UNKNOWN INDICATION
     Dosage: FIRST COURSE, D1 TO D4
     Route: 041
     Dates: start: 20150916, end: 20150919
  17. METHOTREXATE (METHOTREXATE SODIUM) [Suspect]
     Active Substance: METHOTREXATE SODIUM
     Dosage: HIGH DOSE, 12MG/M2, FOURTH COURSE
     Route: 042
     Dates: start: 20151005
  18. METHYLPREDNISOLONE. [Suspect]
     Active Substance: METHYLPREDNISOLONE
     Dosage: SECOND COURSE, FROM D1 TO D5
     Route: 042
     Dates: start: 20151014, end: 20151018
  19. HYDROXYZINE [Suspect]
     Active Substance: HYDROXYZINE\HYDROXYZINE HYDROCHLORIDE
     Dosage: FORM STRENGTH 100MG/2ML, D1 TO D4
     Route: 041
     Dates: start: 20150916, end: 20150919

REACTIONS (5)
  - Paraesthesia oral [Recovered/Resolved]
  - Paraesthesia [Unknown]
  - Hypoaesthesia [Unknown]
  - Encephalopathy [Recovered/Resolved]
  - Hyperaesthesia [Unknown]

NARRATIVE: CASE EVENT DATE: 20150918
